FAERS Safety Report 5804400-4 (Version None)
Quarter: 2008Q3

REPORT INFORMATION
  Report Type: 
  Country: None (occurrence: None)
  Receive Date: 20080702
  Receipt Date: 20071030
  Transmission Date: 20090109
  Serious: Yes (Other)
  Sender: FDA-Public Use
  Company Number: US-WYE-H00984907

PATIENT
  Sex: Female

DRUGS (1)
  1. ADVIL [Suspect]
     Indication: ARTHRALGIA
     Dosage: 1 TABLET AS NEEDED, ORAL
     Route: 048

REACTIONS (1)
  - CHOKING [None]
